FAERS Safety Report 16384688 (Version 1)
Quarter: 2019Q2

REPORT INFORMATION
  Report Type: Spontaneous
  Country: US (occurrence: US)
  Receive Date: 20190427
  Receipt Date: 20190427
  Transmission Date: 20190711
  Serious: No
  Sender: FDA-Public Use
  Company Number: None

PATIENT
  Age: 56 Year
  Sex: Female

DRUGS (4)
  1. HARVONI [Suspect]
     Active Substance: LEDIPASVIR\SOFOSBUVIR
     Dosage: ?          OTHER DOSE:1 TABLET;?
     Route: 048
     Dates: start: 20190325
  2. CARVEDILOL. [Concomitant]
     Active Substance: CARVEDILOL
  3. XANAX [Concomitant]
     Active Substance: ALPRAZOLAM
  4. SYNTHROID [Concomitant]
     Active Substance: LEVOTHYROXINE SODIUM

REACTIONS (3)
  - Infection [None]
  - Oropharyngeal pain [None]
  - Pyrexia [None]

NARRATIVE: CASE EVENT DATE: 20190426
